FAERS Safety Report 7881521-6 (Version None)
Quarter: 2011Q4

REPORT INFORMATION
  Report Type: 
  Country: None (occurrence: None)
  Receive Date: 20111101
  Receipt Date: 20110526
  Transmission Date: 20120403
  Serious: Yes (Other)
  Sender: FDA-Public Use
  Company Number: US-AMGEN-USASP2011027605

PATIENT
  Age: 49 Year
  Sex: Female

DRUGS (1)
  1. ENBREL [Suspect]
     Indication: PSORIASIS
     Dosage: 50 MG, QWK
     Dates: start: 20080507, end: 20110301

REACTIONS (8)
  - ASTHENIA [None]
  - SCAB [None]
  - DIARRHOEA [None]
  - INFLUENZA [None]
  - SALMONELLOSIS [None]
  - ESCHERICHIA INFECTION [None]
  - BACTERIAL DIARRHOEA [None]
  - NASAL CONGESTION [None]
